FAERS Safety Report 6718147-3 (Version None)
Quarter: 2010Q2

REPORT INFORMATION
  Report Type: 
  Country: None (occurrence: None)
  Receive Date: 20100510
  Receipt Date: 20100430
  Transmission Date: 20101027
  Serious: Yes (Other)
  Sender: FDA-Public Use
  Company Number: B0651800A

PATIENT
  Age: 44 Year
  Sex: Female

DRUGS (18)
  1. LITHIUM CARBONATE [Suspect]
     Route: 065
  2. QUETIAPINE [Suspect]
     Route: 065
  3. ONDANSETRON [Suspect]
     Indication: PROPHYLAXIS OF NAUSEA AND VOMITING
     Dosage: 4MG PER DAY
     Route: 042
  4. DULOXETINE HYDROCHLORIDE [Suspect]
     Route: 065
  5. FENTANYL [Suspect]
     Route: 042
  6. HYDROCODONE BITARTRATE AND ACETAMINOPHEN [Suspect]
     Indication: PAIN
     Route: 065
  7. HYDROMORPHONE HCL [Suspect]
     Indication: PAIN
     Dosage: 2MG PER DAY
     Route: 042
  8. LAMOTRIGINE [Concomitant]
     Route: 065
  9. CLONAZEPAM [Concomitant]
     Route: 065
  10. TOPIRAMATE [Concomitant]
     Route: 065
  11. MIDAZOLAM HCL [Concomitant]
     Dosage: 5MG PER DAY
     Route: 042
  12. PROPOFOL [Concomitant]
     Dosage: 120MG PER DAY
     Route: 042
  13. ROCURONIUM BROMIDE [Concomitant]
     Route: 042
  14. DESFLURANE [Concomitant]
     Route: 065
  15. RINGER'S SOLUTION [Concomitant]
     Dosage: 2.9L PER DAY
     Route: 042
  16. NEOSTIGMINE [Concomitant]
     Indication: NEUROMUSCULAR BLOCKADE REVERSAL
     Dosage: 5MG PER DAY
     Route: 042
  17. GLYCOPYRROLATE [Concomitant]
     Indication: NEUROMUSCULAR BLOCKADE REVERSAL
     Dosage: .7MG PER DAY
     Route: 042
  18. UNKNOWN DRUG [Concomitant]
     Dosage: .5L PER DAY

REACTIONS (11)
  - APHASIA [None]
  - CLONUS [None]
  - DISTURBANCE IN ATTENTION [None]
  - DRUG INTERACTION [None]
  - HYPERTONIA [None]
  - HYPOKINESIA [None]
  - MUSCLE RIGIDITY [None]
  - MUSCLE TWITCHING [None]
  - NYSTAGMUS [None]
  - SEROTONIN SYNDROME [None]
  - UNRESPONSIVE TO STIMULI [None]
